FAERS Safety Report 8720194 (Version 2)
Quarter: 2013Q4

REPORT INFORMATION
  Report Type: Report from Study
  Country: JP (occurrence: JP)
  Receive Date: 20120813
  Receipt Date: 20131106
  Transmission Date: 20140711
  Serious: Yes (Hospitalization, Other)
  Sender: FDA-Public Use
  Company Number: JP-009507513-1208JPN004977

PATIENT
  Age: 66 Year
  Sex: Male
  Weight: 79 kg

DRUGS (35)
  1. PEGINTRON [Suspect]
     Indication: HEPATITIS C
     Dosage: 1.5MCG/KG/WEEK
     Route: 058
     Dates: start: 20120215, end: 20120323
  2. REBETOL [Suspect]
     Indication: HEPATITIS C
     Route: 048
     Dates: start: 20120215, end: 20120221
  3. REBETOL [Suspect]
     Indication: HEPATITIS C
     Route: 048
     Dates: start: 20120222, end: 20120228
  4. REBETOL [Suspect]
     Route: 048
     Dates: start: 20120229, end: 20120325
  5. TELAVIC [Suspect]
     Indication: HEPATITIS C
     Route: 048
     Dates: start: 20120215, end: 20120221
  6. TELAVIC [Suspect]
     Route: 048
     Dates: start: 20120222, end: 20120325
  7. DIOVAN [Concomitant]
     Indication: HYPERTENSION
     Route: 048
     Dates: end: 20120419
  8. DIOVAN [Concomitant]
     Route: 048
     Dates: start: 20120502, end: 20120517
  9. AMLODIN OD [Concomitant]
     Indication: HYPERTENSION
     Route: 048
     Dates: end: 20120419
  10. AMLODIN OD [Concomitant]
     Route: 048
     Dates: start: 20120502, end: 20120517
  11. URSO [Concomitant]
     Indication: HEPATITIS C
     Route: 048
     Dates: start: 20120209, end: 20120209
  12. URSO [Concomitant]
     Route: 048
     Dates: start: 20120425, end: 20120517
  13. BAYASPIRIN [Concomitant]
     Indication: MYOCARDIAL ISCHAEMIA
     Route: 048
     Dates: start: 20120209, end: 20120419
  14. BAYASPIRIN [Concomitant]
     Route: 048
     Dates: start: 20120425, end: 20120517
  15. PLAVIX [Concomitant]
     Indication: MYOCARDIAL ISCHAEMIA
     Route: 048
     Dates: start: 20120209, end: 20120419
  16. PLAVIX [Concomitant]
     Route: 048
     Dates: start: 20120425, end: 20120517
  17. MAINTATE [Concomitant]
     Indication: HYPERTENSION
     Route: 048
     Dates: start: 20120209, end: 20120419
  18. MAINTATE [Concomitant]
     Route: 048
     Dates: start: 20120425, end: 20120517
  19. EXFORGE [Concomitant]
     Indication: HYPERTENSION
     Route: 048
     Dates: start: 20120209, end: 20120222
  20. EXFORGE [Concomitant]
     Route: 048
     Dates: start: 20120425, end: 20120515
  21. GASTER D [Concomitant]
     Indication: PROPHYLAXIS
     Route: 048
     Dates: start: 20120209, end: 20120419
  22. GASTER D [Concomitant]
     Route: 048
     Dates: start: 20120425, end: 20120517
  23. GASMOTIN [Concomitant]
     Indication: PROPHYLAXIS
     Route: 048
     Dates: start: 20120219, end: 20120419
  24. GASMOTIN [Concomitant]
     Route: 048
     Dates: start: 20120425, end: 20120517
  25. BIO THREE [Concomitant]
     Route: 048
     Dates: start: 20120210, end: 20120211
  26. PEGASYS [Concomitant]
     Route: 058
     Dates: start: 20120215, end: 20120215
  27. DOGMATYL [Concomitant]
     Indication: PROPHYLAXIS
     Route: 048
     Dates: start: 20120310, end: 20120328
  28. ZADITEN [Concomitant]
     Indication: PROPHYLAXIS
     Route: 031
     Dates: start: 20120314, end: 20120320
  29. HYALEIN [Concomitant]
     Indication: PROPHYLAXIS
     Route: 031
     Dates: start: 20120314, end: 20120320
  30. ADOFEED [Concomitant]
     Indication: PROPHYLAXIS
     Route: 061
     Dates: start: 20120316, end: 20120325
  31. LOXONIN [Concomitant]
     Indication: PROPHYLAXIS
     Route: 061
     Dates: start: 20120322, end: 20120328
  32. REFLEX (MIRTAZAPINE) [Concomitant]
     Indication: DEPRESSION
     Route: 048
     Dates: start: 20120323, end: 20120328
  33. MEDICON (DEXTROMETHORPHAN HYDROBROMIDE) [Concomitant]
     Route: 048
     Dates: start: 20120417, end: 20120419
  34. HIRUDOID [Concomitant]
     Route: 061
     Dates: start: 20120413, end: 20120419
  35. FUCIDIN (FUSIDATE SODIUM) [Concomitant]
     Route: 061
     Dates: start: 20120413, end: 20120419

REACTIONS (4)
  - Renal disorder [Recovered/Resolved]
  - Hyperuricaemia [Recovered/Resolved]
  - Anaemia [Recovered/Resolved]
  - Depression [Not Recovered/Not Resolved]
